FAERS Safety Report 21032223 (Version 1)
Quarter: 2022Q3

REPORT INFORMATION
  Report Type: Spontaneous
  Country: US (occurrence: US)
  Receive Date: 20220701
  Receipt Date: 20220701
  Transmission Date: 20221026
  Serious: No
  Sender: FDA-Public Use
  Company Number: US-009507513-2206USA000488

PATIENT
  Sex: Female

DRUGS (1)
  1. STROMECTOL [Suspect]
     Active Substance: IVERMECTIN
     Indication: Ill-defined disorder
     Dosage: UNK
     Route: 048

REACTIONS (1)
  - Off label use [Unknown]
